FAERS Safety Report 18329441 (Version 1)
Quarter: 2020Q3

REPORT INFORMATION
  Report Type: Spontaneous
  Country: US (occurrence: US)
  Receive Date: 20200929
  Receipt Date: 20200929
  Transmission Date: 20201103
  Serious: No
  Sender: FDA-Public Use
  Company Number: None

PATIENT
  Age: 63 Year
  Sex: Female

DRUGS (1)
  1. TALZENNA [Suspect]
     Active Substance: TALAZOPARIB TOSYLATE
     Dates: start: 202008

REACTIONS (3)
  - Skin haemorrhage [None]
  - Dry skin [None]
  - Skin disorder [None]

NARRATIVE: CASE EVENT DATE: 20200928
